FAERS Safety Report 5209233-8 (Version None)
Quarter: 2007Q1

REPORT INFORMATION
  Report Type: 
  Country: None (occurrence: None)
  Receive Date: 20070116
  Receipt Date: 20070104
  Transmission Date: 20070707
  Serious: Yes (Death)
  Sender: FDA-Public Use
  Company Number: BE-JNJFOC-20070100142

PATIENT
  Sex: Female

DRUGS (8)
  1. GALANTAMINE HYDROBROMIDE [Suspect]
     Indication: DEMENTIA ALZHEIMER'S TYPE
     Route: 048
  2. MOTILIUM [Concomitant]
     Indication: ABDOMINAL PAIN
  3. CARBAMAZEPINE [Concomitant]
     Indication: TRIGEMINAL NEURALGIA
     Route: 048
  4. OMEPRAZOLE [Concomitant]
     Indication: OESOPHAGITIS
     Route: 048
  5. REDOMEX [Concomitant]
     Indication: TRIGEMINAL NEURALGIA
     Route: 048
  6. VOLTAREN [Concomitant]
     Indication: PAIN
     Route: 061
  7. TENORMIN [Concomitant]
     Indication: HYPERTENSION
     Route: 048
  8. AMLOR [Concomitant]
     Indication: HYPERTENSION
     Route: 048

REACTIONS (1)
  - MYOCARDIAL INFARCTION [None]
